FAERS Safety Report 12361826 (Version 1)
Quarter: 2016Q2

REPORT INFORMATION
  Report Type: Spontaneous
  Country: US (occurrence: US)
  Receive Date: 20160512
  Receipt Date: 20160512
  Transmission Date: 20160815
  Serious: Yes (Hospitalization)
  Sender: FDA-Public Use
  Company Number: US-SA-2016SA064544

PATIENT
  Sex: Female

DRUGS (3)
  1. PRALUENT [Suspect]
     Active Substance: ALIROCUMAB
     Indication: TYPE IIA HYPERLIPIDAEMIA
     Route: 058
  2. PENICILLIN [Suspect]
     Active Substance: PENICILLIN
     Route: 065
  3. ALIROCUMAB PREFILLED PEN [Concomitant]
     Active Substance: ALIROCUMAB

REACTIONS (7)
  - Dry mouth [Unknown]
  - Abdominal discomfort [Unknown]
  - Myalgia [Unknown]
  - Vision blurred [Unknown]
  - Bronchitis [Unknown]
  - Diarrhoea [Unknown]
  - Arthralgia [Unknown]
